FAERS Safety Report 5411484-4 (Version None)
Quarter: 2007Q3

REPORT INFORMATION
  Report Type: 
  Country: None (occurrence: None)
  Receive Date: 20070810
  Receipt Date: 20070807
  Transmission Date: 20080115
  Serious: Yes (Other)
  Sender: FDA-Public Use
  Company Number: CA-SHR-CA-2007-029196

PATIENT
  Age: 55 Year
  Sex: Female

DRUGS (9)
  1. BETASERON [Suspect]
     Indication: RELAPSING-REMITTING MULTIPLE SCLEROSIS
     Dosage: 6 MIU, EVERY 2D
     Route: 058
     Dates: start: 20070704
  2. TYLENOL W/ CODEINE NO. 3 [Concomitant]
     Indication: PAIN
  3. MULTI-VITAMINS [Concomitant]
     Route: 048
  4. VALIUM [Concomitant]
     Indication: SEDATIVE THERAPY
     Dosage: 5 MG, UNK
     Route: 048
  5. GLUCOSAMINE [Concomitant]
     Route: 048
  6. SALMON OIL [Concomitant]
     Route: 048
  7. VITAMIN D [Concomitant]
     Route: 048
  8. ATENOLOL [Concomitant]
     Route: 048
  9. ZOPLICONE [Concomitant]
     Indication: SEDATIVE THERAPY
     Dosage: 7 MG
     Route: 048

REACTIONS (2)
  - BREAST CYST [None]
  - POST PROCEDURAL HAEMATOMA [None]
